FAERS Safety Report 10076124 (Version 1)
Quarter: 2014Q2

REPORT INFORMATION
  Report Type: Spontaneous
  Country: US (occurrence: None)
  Receive Date: 20140410
  Receipt Date: 20140410
  Transmission Date: 20141212
  Serious: Yes (Hospitalization, Other)
  Sender: FDA-Public Use
  Company Number: KV201400059

PATIENT
  Sex: Male

DRUGS (1)
  1. MAKENA (HYDROXYPROGESTERONE CAPROATE 250 MG/ML) INJECTION, 250MG/ML [Suspect]
     Indication: EXPOSURE DURING PREGNANCY

REACTIONS (3)
  - Neonatal aspiration [None]
  - Neonatal aspiration [None]
  - Maternal drugs affecting foetus [None]
